FAERS Safety Report 10182426 (Version 1)
Quarter: 2014Q2

REPORT INFORMATION
  Report Type: Spontaneous
  Country: CH (occurrence: CH)
  Receive Date: 20140520
  Receipt Date: 20140520
  Transmission Date: 20141212
  Serious: Yes (Hospitalization)
  Sender: FDA-Public Use
  Company Number: CH-ROCHE-1403154

PATIENT
  Age: 67 Year
  Sex: Female

DRUGS (5)
  1. BONVIVA [Suspect]
     Indication: OSTEOPOROSIS
     Route: 040
     Dates: start: 2010, end: 201405
  2. SEROQUEL [Concomitant]
     Dosage: DURATION OF USE: LONG TERM
     Route: 048
  3. COLECALCIFEROL [Concomitant]
     Dosage: DURATION OF USE: LONG TERM
     Route: 048
  4. DALMADORM [Concomitant]
     Dosage: DURATION OF USE: LONG TERM
     Route: 048
  5. CALCIMAGON-D3 [Concomitant]
     Dosage: DURATION OF USE: LONG TERM
     Route: 048

REACTIONS (1)
  - Atypical fracture [Recovering/Resolving]
